FAERS Safety Report 8861463 (Version 1)
Quarter: 2012Q4

REPORT INFORMATION
  Report Type: Spontaneous
  Country: US (occurrence: None)
  Receive Date: 20121022
  Receipt Date: 20121022
  Transmission Date: 20130627
  Serious: Yes (Other)
  Sender: FDA-Public Use
  Company Number: 2012SUN00155

PATIENT
  Age: 33 Year
  Sex: Female

DRUGS (6)
  1. TRAMADOL HCL [Suspect]
     Indication: NEUROPATHIC PAIN
     Dosage: 300 to 400 mg/day
  2. VENLAFAXINE [Suspect]
     Indication: DEPRESSION
  3. SERTRALINE [Suspect]
     Indication: DEPRESSION
  4. OXCARBAZEPINE (OXCARBAZEPINE) [Concomitant]
  5. LAMOTRIGINE (LAMOTRIGINE) [Concomitant]
  6. PHENYTOIN (PHENYTOIN) [Concomitant]

REACTIONS (3)
  - Drug interaction [None]
  - Drug abuse [None]
  - Convulsion [None]
